FAERS Safety Report 12243450 (Version 1)
Quarter: 2016Q2

REPORT INFORMATION
  Report Type: Other
  Country: SE (occurrence: SE)
  Receive Date: 20160406
  Receipt Date: 20160406
  Transmission Date: 20160815
  Serious: Yes (Other)
  Sender: FDA-Public Use
  Company Number: SE-MYLANLABS-2016M1013829

PATIENT

DRUGS (1)
  1. ATORVASTATIN MYLAN 20 MG FILMDRAGERADE TABLETTER [Suspect]
     Active Substance: ATORVASTATIN
     Indication: BLOOD TRIGLYCERIDES ABNORMAL
     Dosage: 20 MG, QD
     Route: 048
     Dates: start: 20160307, end: 20160320

REACTIONS (4)
  - Fine motor skill dysfunction [Not Recovered/Not Resolved]
  - Chest pain [Not Recovered/Not Resolved]
  - Somnolence [Not Recovered/Not Resolved]
  - Hypoaesthesia [Not Recovered/Not Resolved]

NARRATIVE: CASE EVENT DATE: 201603
